FAERS Safety Report 5570912-4 (Version None)
Quarter: 2007Q4

REPORT INFORMATION
  Report Type: 
  Country: None (occurrence: None)
  Receive Date: 20071221
  Receipt Date: 20071218
  Transmission Date: 20080405
  Serious: Yes (Death)
  Sender: FDA-Public Use
  Company Number: FR-AVENTIS-200714049FR

PATIENT
  Age: 80 Year
  Sex: Female

DRUGS (6)
  1. LOVENOX [Suspect]
     Route: 058
     Dates: start: 20070301, end: 20070311
  2. ALLOPURINOL [Concomitant]
     Route: 048
  3. RAMIPRIL [Concomitant]
     Route: 048
  4. LASIX [Concomitant]
     Route: 048
  5. ATENOLOL [Concomitant]
     Route: 048
  6. METFORMIN HCL [Concomitant]
     Route: 048

REACTIONS (1)
  - HEPARIN-INDUCED THROMBOCYTOPENIA [None]
